FAERS Safety Report 8546556 (Version 2)
Quarter: 2013Q2

REPORT INFORMATION
  Report Type: Spontaneous
  Country: CA (occurrence: CA)
  Receive Date: 20120504
  Receipt Date: 20130503
  Transmission Date: 20140414
  Serious: Yes (Other)
  Sender: FDA-Public Use
  Company Number: CA-JNJFOC-20120411787

PATIENT
  Age: 20 Year
  Sex: Female
  Weight: 54 kg

DRUGS (7)
  1. REMICADE [Suspect]
     Indication: COLITIS ULCERATIVE
     Route: 042
     Dates: start: 20110920
  2. PREDNISONE [Concomitant]
     Dosage: 8 TABLETS ALERNATE WITH 6 TABLETSV1: 8 MG ALTERNATE WITH 4 MG (^UNKOWN^)
     Route: 065
  3. PURINETHOL [Concomitant]
     Route: 065
  4. SALOFALK [Concomitant]
     Route: 065
  5. FISH OIL [Concomitant]
     Route: 065
  6. VIT D [Concomitant]
     Route: 065
  7. CALCIUM [Concomitant]
     Route: 065

REACTIONS (3)
  - Surgery [Unknown]
  - Fungal infection [Recovered/Resolved]
  - Headache [Recovered/Resolved]
